FAERS Safety Report 25400376 (Version 1)
Quarter: 2025Q2

REPORT INFORMATION
  Report Type: Spontaneous
  Country: US (occurrence: US)
  Receive Date: 20250605
  Receipt Date: 20250605
  Transmission Date: 20250717
  Serious: No
  Sender: VIIV
  Company Number: US-VIIV HEALTHCARE-US2025069276

PATIENT

DRUGS (2)
  1. JULUCA [Suspect]
     Active Substance: DOLUTEGRAVIR SODIUM\RILPIVIRINE HYDROCHLORIDE
     Indication: HIV infection
     Route: 048
  2. SELZENTRY [Suspect]
     Active Substance: MARAVIROC
     Indication: HIV infection
     Route: 048

REACTIONS (2)
  - Viral load increased [Unknown]
  - Illness [Unknown]
